FAERS Safety Report 8242296-4 (Version None)
Quarter: 2012Q1

REPORT INFORMATION
  Report Type: 
  Country: None (occurrence: None)
  Receive Date: 20120329
  Receipt Date: 20120326
  Transmission Date: 20120608
  Serious: No
  Sender: FDA-Public Use
  Company Number: US-PFIZER INC-2012077557

PATIENT
  Sex: Female
  Weight: 90.703 kg

DRUGS (1)
  1. NORVASC [Suspect]
     Indication: HYPERTENSION
     Dosage: 10 MG, DAILY
     Route: 048
     Dates: start: 20100101

REACTIONS (3)
  - PRURITUS [None]
  - FOOD ALLERGY [None]
  - RASH [None]
